FAERS Safety Report 6310261-X (Version None)
Quarter: 2009Q3

REPORT INFORMATION
  Report Type: 
  Country: None (occurrence: None)
  Receive Date: 20090814
  Receipt Date: 20090731
  Transmission Date: 20100115
  Serious: Yes (Hospitalization)
  Sender: FDA-Public Use
  Company Number: DE-MYLANLABS-2009S1013732

PATIENT
  Age: 64 Year
  Sex: Male

DRUGS (5)
  1. CLOPIDOGREL [Suspect]
     Indication: THROMBOSIS PROPHYLAXIS
     Dates: start: 20030701, end: 20040101
  2. CLOPIDOGREL [Suspect]
     Dates: start: 20040101
  3. TICLOPIDINE HCL [Suspect]
     Indication: THROMBOSIS PROPHYLAXIS
     Dates: start: 20040201, end: 20040101
  4. ASPIRIN [Concomitant]
     Dates: start: 20030701
  5. PHENPROCOUMON [Concomitant]
     Dates: start: 20030101, end: 20040201

REACTIONS (2)
  - DRUG RESISTANCE [None]
  - STENT EMBOLISATION [None]
